FAERS Safety Report 5072842-3 (Version None)
Quarter: 2006Q3

REPORT INFORMATION
  Report Type: 
  Country: None (occurrence: None)
  Receive Date: 20060802
  Receipt Date: 20060720
  Transmission Date: 20061208
  Serious: Yes (Hospitalization)
  Sender: FDA-Public Use
  Company Number: 2006-BP-08360RO

PATIENT
  Age: 65 Year
  Sex: Female

DRUGS (5)
  1. DICLOFENAC (DICLOFENAC) [Suspect]
     Indication: RHEUMATOID ARTHRITIS
     Dosage: REFER TO TEXT (50 MG), PO
     Route: 048
  2. HYDROCORTISONE [Concomitant]
  3. RANITIDINE [Concomitant]
  4. FOLIC ACID [Concomitant]
  5. METHOTREXATE TABLETS USP (METHOTREXATE) [Concomitant]

REACTIONS (9)
  - ABDOMINAL SEPSIS [None]
  - ARTHRITIS BACTERIAL [None]
  - COLONIC STENOSIS [None]
  - GASTROINTESTINAL DISORDER [None]
  - HYPERTENSION [None]
  - LARGE INTESTINE PERFORATION [None]
  - MUCOSAL ULCERATION [None]
  - MYELODYSPLASTIC SYNDROME [None]
  - OSTEOPOROSIS [None]
